FAERS Safety Report 4324876-1 (Version None)
Quarter: 2004Q1

REPORT INFORMATION
  Report Type: 
  Country: None (occurrence: None)
  Receive Date: 20040323
  Receipt Date: 20040102
  Transmission Date: 20041129
  Serious: No
  Sender: FDA-Public Use
  Company Number: M03-341-145

PATIENT
  Age: 77 Year
  Sex: Male
  Weight: 73 kg

DRUGS (7)
  1. VELCADE [Suspect]
     Indication: MULTIPLE MYELOMA
     Dosage: INTRAVENOUS
     Route: 042
     Dates: start: 20031006, end: 20031031
  2. ANTIHYPERTENSIVES [Concomitant]
  3. ARANESP [Concomitant]
  4. DEXAMETHASONE [Concomitant]
  5. FOLIC ACID [Concomitant]
  6. IRON [Concomitant]
  7. LISINOPRIL [Concomitant]

REACTIONS (5)
  - CONSTIPATION [None]
  - COUGH [None]
  - FATIGUE [None]
  - PHARYNGITIS [None]
  - RHINORRHOEA [None]
